FAERS Safety Report 8010873 (Version 5)
Quarter: 2013Q1

REPORT INFORMATION
  Report Type: Spontaneous
  Country: FR (occurrence: FR)
  Receive Date: 20110627
  Receipt Date: 20130212
  Transmission Date: 20140127
  Serious: Yes (Other)
  Sender: FDA-Public Use
  Company Number: FR-BAYER-2011-050036

PATIENT
  Age: 23 Year
  Sex: Female
  Weight: 58 kg

DRUGS (2)
  1. QLAIRA [Suspect]
     Indication: CONTRACEPTION
     Dosage: 1 DF, QD
     Route: 048
     Dates: start: 20100706, end: 20111002
  2. LEVOTHYROXIN [Concomitant]
     Indication: THYROIDECTOMY
     Dosage: 150 ?G, QD
     Route: 048
     Dates: start: 2009

REACTIONS (8)
  - Haemorrhagic cyst [Recovered/Resolved]
  - Pain [Recovered/Resolved]
  - Haemorrhage [Recovered/Resolved]
  - Dyspareunia [None]
  - Fungal infection [None]
  - Peripheral artery thrombosis [Recovered/Resolved]
  - Phlebitis deep [Recovered/Resolved]
  - Pain in extremity [Recovered/Resolved]
